FAERS Safety Report 14925937 (Version 1)
Quarter: 2018Q2

REPORT INFORMATION
  Report Type: Spontaneous
  Country: US (occurrence: US)
  Receive Date: 20180522
  Receipt Date: 20180522
  Transmission Date: 20180711
  Serious: Yes (Other)
  Sender: FDA-Public Use
  Company Number: US-BEH-2018090686

PATIENT
  Age: 16 Year
  Sex: Male

DRUGS (2)
  1. HUMATE-P [Suspect]
     Active Substance: HUMAN COAGULATION FACTOR VIII/VON WILLEBRAND FACTOR COMPLEX
     Indication: FACTOR VIII DEFICIENCY
     Dosage: 2500 IU, THREE DAYS WEEKLY
     Route: 042
     Dates: start: 20131230
  2. HUMATE-P [Suspect]
     Active Substance: HUMAN COAGULATION FACTOR VIII/VON WILLEBRAND FACTOR COMPLEX
     Indication: PROPHYLAXIS
     Dosage: 2500 IU, DIALY PRN
     Route: 042

REACTIONS (2)
  - Haemarthrosis [Unknown]
  - Haematoma [Unknown]
